FAERS Safety Report 10258908 (Version 1)
Quarter: 2014Q2

REPORT INFORMATION
  Report Type: Spontaneous
  Country: US (occurrence: US)
  Receive Date: 20140625
  Receipt Date: 20140625
  Transmission Date: 20141212
  Serious: Yes (Other)
  Sender: FDA-Public Use
  Company Number: US-ROCHE-1423181

PATIENT
  Age: 61 Year
  Sex: Female

DRUGS (11)
  1. XELODA [Suspect]
     Indication: NEOPLASM MALIGNANT
     Dosage: 7 DAYS ON AND 7 DAYS OFF
     Route: 048
     Dates: start: 20131231, end: 20140225
  2. AVASTIN [Suspect]
     Indication: PRODUCT USED FOR UNKNOWN INDICATION
     Dosage: AS NEEDED
     Route: 065
  3. DIAZEPAM [Concomitant]
     Route: 065
     Dates: start: 20140609
  4. LISINOPRIL [Concomitant]
     Route: 001
     Dates: start: 20140609
  5. LISINOPRIL [Concomitant]
     Route: 065
     Dates: end: 20140521
  6. DEXTROAMPHETAMINE [Concomitant]
     Route: 065
     Dates: start: 20140520
  7. DEXTROAMPHETAMINE [Concomitant]
     Route: 065
  8. DEXTROAMPHETAMINE [Concomitant]
     Route: 065
  9. CARVEDILOL [Concomitant]
     Route: 065
     Dates: start: 20140516
  10. ATENOLOL [Concomitant]
     Route: 065
     Dates: start: 20140315
  11. ALPRAZOLAM [Concomitant]
     Route: 065
     Dates: start: 20131011, end: 20131213

REACTIONS (2)
  - Hepatic cancer [Not Recovered/Not Resolved]
  - Therapeutic product ineffective [Unknown]
